FAERS Safety Report 6934814-0 (Version None)
Quarter: 2010Q3

REPORT INFORMATION
  Report Type: 
  Country: None (occurrence: None)
  Receive Date: 20100820
  Receipt Date: 20100806
  Transmission Date: 20110219
  Serious: Yes (Hospitalization)
  Sender: FDA-Public Use
  Company Number: PHHO2010BE11929

PATIENT
  Sex: Female
  Weight: 12 kg

DRUGS (3)
  1. BLINDED ACZ885 ACZ+ [Suspect]
     Indication: JUVENILE ARTHRITIS
     Dosage: CODE NOT BROKEN
  2. BLINDED NO TREATMENT RECEIVED NOMED [Suspect]
     Indication: JUVENILE ARTHRITIS
     Dosage: CODE NOT BROKEN
  3. BLINDED PLACEBO COMP-PLA+ [Suspect]
     Indication: JUVENILE ARTHRITIS
     Dosage: CODE NOT BROKEN

REACTIONS (1)
  - GASTROINTESTINAL INFECTION [None]
